FAERS Safety Report 4836313-9 (Version None)
Quarter: 2005Q4

REPORT INFORMATION
  Report Type: 
  Country: None (occurrence: None)
  Receive Date: 20051123
  Receipt Date: 20041121
  Transmission Date: 20060501
  Serious: Yes (Other)
  Sender: FDA-Public Use
  Company Number: PHBS2004ES15712

PATIENT
  Age: 36 Year
  Sex: Female

DRUGS (4)
  1. AREDIA [Suspect]
     Indication: BREAST CANCER FEMALE
     Route: 042
  2. ADRIAMYCIN PFS [Concomitant]
     Route: 065
  3. DOCETAXEL [Concomitant]
     Route: 065
  4. ZOMETA [Suspect]
     Indication: BREAST CANCER FEMALE
     Route: 042

REACTIONS (7)
  - BONE DISORDER [None]
  - FISTULA [None]
  - OSTEOMYELITIS CHRONIC [None]
  - OSTEONECROSIS [None]
  - PAIN IN JAW [None]
  - PURULENCE [None]
  - TOOTH EXTRACTION [None]
